FAERS Safety Report 10955045 (Version 4)
Quarter: 2016Q3

REPORT INFORMATION
  Report Type: Report from Study
  Country: US (occurrence: US)
  Receive Date: 20150325
  Receipt Date: 20160830
  Transmission Date: 20161109
  Serious: Yes (Other)
  Sender: FDA-Public Use
  Company Number: US-AMGEN-USASP2015027722

PATIENT
  Age: 62 Year
  Sex: Female

DRUGS (3)
  1. ENBREL [Suspect]
     Active Substance: ETANERCEPT
     Dosage: UNK
     Route: 065
     Dates: start: 201603
  2. ENBREL [Suspect]
     Active Substance: ETANERCEPT
     Indication: RHEUMATOID ARTHRITIS
     Dosage: 50 MG, QWK
     Route: 065
     Dates: start: 20010615, end: 2014
  3. XELJANZ [Suspect]
     Active Substance: TOFACITINIB CITRATE
     Indication: PRODUCT USED FOR UNKNOWN INDICATION
     Dosage: UNK
     Route: 065

REACTIONS (12)
  - Headache [Unknown]
  - Bedridden [Unknown]
  - Influenza [Recovered/Resolved]
  - Musculoskeletal discomfort [Recovered/Resolved]
  - Upper respiratory tract infection [Unknown]
  - Arthropathy [Recovered/Resolved]
  - Drug effect decreased [Unknown]
  - Rheumatoid arthritis [Unknown]
  - Hypothyroidism [Unknown]
  - Arthritis [Not Recovered/Not Resolved]
  - Goitre [Unknown]
  - Bronchitis [Unknown]

NARRATIVE: CASE EVENT DATE: 2013
